FAERS Safety Report 7021660-5 (Version None)
Quarter: 2010Q3

REPORT INFORMATION
  Report Type: 
  Country: None (occurrence: None)
  Receive Date: 20100928
  Receipt Date: 20100915
  Transmission Date: 20110219
  Serious: Yes (Other)
  Sender: FDA-Public Use
  Company Number: 019069

PATIENT
  Age: 13 Year
  Sex: Male

DRUGS (1)
  1. EQUASYM (EQUASYM RETARD) [Suspect]
     Dosage: (30 MG QD ORAL)
     Route: 048
     Dates: start: 20100301

REACTIONS (1)
  - GYNAECOMASTIA [None]
